FAERS Safety Report 8594457-2 (Version None)
Quarter: 2012Q3

REPORT INFORMATION
  Report Type: 
  Country: None (occurrence: None)
  Receive Date: 20120815
  Receipt Date: 20120731
  Transmission Date: 20120928
  Serious: Yes (Hospitalization)
  Sender: FDA-Public Use
  Company Number: US-BIOGENIDEC-2012BI030890

PATIENT
  Age: 53 Year
  Sex: Female
  Weight: 51 kg

DRUGS (2)
  1. AVONEX [Suspect]
     Indication: MULTIPLE SCLEROSIS
     Route: 030
  2. COPAXONE [Concomitant]
     Indication: MULTIPLE SCLEROSIS
     Route: 058
     Dates: start: 20111001

REACTIONS (5)
  - ANAEMIA [None]
  - NAUSEA [None]
  - HEPATIC ENZYME INCREASED [None]
  - GALLBLADDER DISORDER [None]
  - CHEST PAIN [None]
